FAERS Safety Report 5237164-6 (Version None)
Quarter: 2007Q1

REPORT INFORMATION
  Report Type: 
  Country: None (occurrence: None)
  Receive Date: 20070213
  Receipt Date: 20070212
  Transmission Date: 20070707
  Serious: Yes (Other)
  Sender: FDA-Public Use
  Company Number: DE-GLAXOSMITHKLINE-D0051717A

PATIENT
  Age: 5 Year
  Sex: Female
  Weight: 20 kg

DRUGS (3)
  1. AUGMENTIN '125' [Suspect]
     Indication: STREPTOCOCCAL INFECTION
     Route: 065
     Dates: start: 20061202, end: 20061206
  2. AMOXICILLIN [Concomitant]
     Indication: SCARLET FEVER
     Route: 065
     Dates: start: 20050901
  3. PHENOXYMETHYLPENICILLIN-KALIUM [Concomitant]
     Indication: STREPTOCOCCAL INFECTION
     Route: 065
     Dates: start: 20061207

REACTIONS (2)
  - HENOCH-SCHONLEIN PURPURA [None]
  - HYPERSENSITIVITY [None]
